FAERS Safety Report 5852398-5 (Version None)
Quarter: 2008Q3

REPORT INFORMATION
  Report Type: 
  Country: None (occurrence: None)
  Receive Date: 20080820
  Receipt Date: 20080820
  Transmission Date: 20090109
  Serious: Yes (Hospitalization)
  Sender: FDA-Public Use
  Company Number: None

PATIENT
  Age: 65 Year
  Sex: Male
  Weight: 112.1 kg

DRUGS (2)
  1. DOCETAXEL [Suspect]
     Indication: NEOPLASM MALIGNANT
     Dosage: 188 MG ONCE IV
     Route: 042
     Dates: start: 20080801, end: 20080801
  2. CARBOPLATIN [Suspect]
     Indication: NEOPLASM MALIGNANT
     Dosage: 460 MG ONCE IV
     Route: 042
     Dates: start: 20080801, end: 20080801

REACTIONS (1)
  - FEBRILE NEUTROPENIA [None]
